FAERS Safety Report 5984860-9 (Version None)
Quarter: 2008Q4

REPORT INFORMATION
  Report Type: 
  Country: None (occurrence: None)
  Receive Date: 20081208
  Receipt Date: 20080312
  Transmission Date: 20090506
  Serious: No
  Sender: FDA-Public Use
  Company Number: US-AMGEN-KDL269387

PATIENT
  Sex: Female

DRUGS (3)
  1. ENBREL [Suspect]
     Indication: RHEUMATOID ARTHRITIS
     Route: 058
     Dates: start: 20080131
  2. HYDROXYCHLOROQUINE SULFATE [Concomitant]
     Dates: start: 20060101
  3. METHOTREXATE [Concomitant]
     Dates: start: 20070801

REACTIONS (6)
  - COUGH [None]
  - HEADACHE [None]
  - NAUSEA [None]
  - PYREXIA [None]
  - SINUS CONGESTION [None]
  - VOMITING [None]
